FAERS Safety Report 4534281-0 (Version None)
Quarter: 2004Q4

REPORT INFORMATION
  Report Type: 
  Country: None (occurrence: None)
  Receive Date: 20041214
  Receipt Date: 20040817
  Transmission Date: 20050328
  Serious: No
  Sender: FDA-Public Use
  Company Number: 2004230197US

PATIENT
  Sex: Female

DRUGS (3)
  1. BEXTRA [Suspect]
     Dosage: 10 MG
  2. CELEBREX [Suspect]
  3. MOBOC (MELOXICAM) [Concomitant]

REACTIONS (5)
  - DIZZINESS [None]
  - FATIGUE [None]
  - HEADACHE [None]
  - NASAL DRYNESS [None]
  - PAIN [None]
